FAERS Safety Report 10861047 (Version 1)
Quarter: 2015Q1

REPORT INFORMATION
  Report Type: Spontaneous
  Country: US (occurrence: None)
  Receive Date: 20150218
  Receipt Date: 20150218
  Transmission Date: 20150721
  Serious: No
  Sender: FDA-Public Use
  Company Number: None

PATIENT
  Age: 73 Year
  Sex: Male

DRUGS (1)
  1. MULTIHANCE [Suspect]
     Active Substance: GADOBENATE DIMEGLUMINE
     Dosage: LESS THAN 5ML
     Route: 042
     Dates: start: 20150120

REACTIONS (1)
  - Pharyngeal oedema [None]

NARRATIVE: CASE EVENT DATE: 20150120
